FAERS Safety Report 9601789 (Version 2)
Quarter: 2013Q4

REPORT INFORMATION
  Report Type: Spontaneous
  Country: JP (occurrence: JP)
  Receive Date: 20131007
  Receipt Date: 20131007
  Transmission Date: 20140711
  Serious: Yes (Other)
  Sender: FDA-Public Use
  Company Number: JP-009507513-1307JPN016707

PATIENT
  Age: 63 Year
  Sex: Female

DRUGS (15)
  1. BETAMETHASONE SODIUM PHOSPHATE [Suspect]
     Indication: LUNG NEOPLASM MALIGNANT
     Dosage: 4 MG, QD, (ROUTE OF ADMINISTRATION : DR)
     Dates: start: 20130624, end: 20130624
  2. BETAMETHASONE SODIUM PHOSPHATE [Suspect]
     Indication: METASTASES TO BONE
     Dosage: 8 MG, QAM  (ROUTE OF ADMINISTRATION : DR) (12 MG/DAY (8 MG IN THE MORNING, 4 MG IN THE EVENING)
     Dates: start: 20130625, end: 20130701
  3. BETAMETHASONE SODIUM PHOSPHATE [Suspect]
     Dosage: 4 MG, QPM (12 MG/DAY  (ROUTE OF ADMINISTRATION : DR) (8 MG IN THE MORNING, 4 MG IN THE EVENING)
     Dates: start: 20130625, end: 20130701
  4. BETAMETHASONE SODIUM PHOSPHATE [Suspect]
     Dosage: 8 MG, QD,  (ROUTE OF ADMINISTRATION : DR)
     Dates: start: 20130702, end: 20130706
  5. BETAMETHASONE SODIUM PHOSPHATE [Suspect]
     Dosage: 4 MG, QD,  (ROUTE OF ADMINISTRATION : DR)
     Dates: start: 20130707, end: 20130716
  6. BETAMETHASONE [Suspect]
     Indication: LUNG NEOPLASM MALIGNANT
     Dosage: 1.5 MG, BID
     Route: 048
     Dates: start: 20130717, end: 20130723
  7. OXYCONTIN [Concomitant]
     Indication: METASTASES TO BONE
     Dosage: 5 MG, BID
     Route: 048
     Dates: start: 20130604
  8. LIPITOR [Concomitant]
     Indication: HYPERLIPIDAEMIA
     Dosage: 5 MG, QD
     Route: 048
  9. OMEPRAZOLE [Concomitant]
     Indication: GASTRIC ULCER
     Dosage: 20 MG, QD
     Route: 048
  10. DEPAS [Concomitant]
     Indication: ANXIETY DISORDER
     Dosage: 0.5 MG, QD
     Route: 048
  11. MAGMITT [Concomitant]
     Indication: CONSTIPATION
     Dosage: 750 MG, QD
     Route: 048
     Dates: start: 20130615
  12. MUCOSTA [Concomitant]
     Indication: METASTASES TO BONE
     Dosage: 300 MG, QD
     Route: 048
     Dates: start: 20130604
  13. GLYCEOL (FRUCTOSE (+) GLYCERIN (+) SODIUM CHLORIDE) [Concomitant]
     Dosage: ROUTE DR
     Dates: start: 20130624
  14. PANVITAN [Concomitant]
     Indication: LUNG NEOPLASM MALIGNANT
     Dosage: 1 G, QD
     Route: 048
     Dates: start: 20130606
  15. LOXONIN [Concomitant]
     Indication: METASTASES TO BONE
     Dosage: 180 MG, QD
     Route: 048
     Dates: start: 20130604

REACTIONS (1)
  - Hepatic function abnormal [Recovering/Resolving]
